FAERS Safety Report 24299328 (Version 1)
Quarter: 2024Q3

REPORT INFORMATION
  Report Type: Spontaneous
  Country: CA (occurrence: CA)
  Receive Date: 20240909
  Receipt Date: 20240909
  Transmission Date: 20241016
  Serious: Yes (Hospitalization)
  Sender: TEVA
  Company Number: CA-TEVA-VS-3239461

PATIENT
  Age: 54 Year

DRUGS (3)
  1. ETOPOSIDE [Suspect]
     Active Substance: ETOPOSIDE
     Indication: Diffuse large B-cell lymphoma
     Route: 065
  2. ALKERAN [Suspect]
     Active Substance: MELPHALAN
     Indication: Diffuse large B-cell lymphoma
     Route: 065
  3. PEGFILGRASTIM [Suspect]
     Active Substance: PEGFILGRASTIM
     Indication: Diffuse large B-cell lymphoma
     Route: 065

REACTIONS (4)
  - Febrile neutropenia [Recovered/Resolved]
  - Hypotension [Recovered/Resolved]
  - Septic shock [Recovered/Resolved]
  - Infection [Recovered/Resolved]
